FAERS Safety Report 11682092 (Version 4)
Quarter: 2016Q1

REPORT INFORMATION
  Report Type: Spontaneous
  Country: US (occurrence: US)
  Receive Date: 20151029
  Receipt Date: 20160121
  Transmission Date: 20160525
  Serious: Yes (Other)
  Sender: FDA-Public Use
  Company Number: PHEH2015US021332

PATIENT
  Sex: Female
  Weight: 50 kg

DRUGS (13)
  1. FASLODEX [Suspect]
     Active Substance: FULVESTRANT
     Dosage: 500 MG, QMO
     Route: 030
     Dates: start: 20140508
  2. ULTRAM [Concomitant]
     Active Substance: TRAMADOL HYDROCHLORIDE
     Indication: PRODUCT USED FOR UNKNOWN INDICATION
     Dosage: 1 DF, QID (1 TABLET, QID)
     Route: 048
  3. FASLODEX [Suspect]
     Active Substance: FULVESTRANT
     Indication: BREAST CANCER METASTATIC
     Dosage: UNK
     Route: 030
     Dates: start: 201308
  4. ZOMETA [Suspect]
     Active Substance: ZOLEDRONIC ACID
     Indication: BREAST CANCER METASTATIC
     Dosage: 4 MG, QMO
     Route: 042
     Dates: start: 20140508
  5. AZOR [Concomitant]
     Active Substance: AMLODIPINE BESYLATE\OLMESARTAN MEDOXOMIL
     Indication: PRODUCT USED FOR UNKNOWN INDICATION
     Dosage: 1 DF, QD
     Route: 048
  6. LORATADINE. [Concomitant]
     Active Substance: LORATADINE
     Indication: PRODUCT USED FOR UNKNOWN INDICATION
     Dosage: 1 DF, QD
     Route: 048
     Dates: start: 20150108
  7. ASPIRIN. [Concomitant]
     Active Substance: ASPIRIN
     Indication: PRODUCT USED FOR UNKNOWN INDICATION
     Dosage: 1 DF, QD
     Route: 048
  8. VITAMIN B12 [Concomitant]
     Active Substance: CYANOCOBALAMIN
     Indication: PRODUCT USED FOR UNKNOWN INDICATION
     Dosage: 1 DF, QD (1 TABLET, QD)
     Route: 048
     Dates: start: 20140507
  9. ZOMETA [Suspect]
     Active Substance: ZOLEDRONIC ACID
     Indication: METASTASES TO BONE
  10. XANAX [Concomitant]
     Active Substance: ALPRAZOLAM
     Indication: PRODUCT USED FOR UNKNOWN INDICATION
     Dosage: 1 DF, Q8H (PRN)
     Route: 048
     Dates: start: 20150701
  11. AROMASIN [Suspect]
     Active Substance: EXEMESTANE
     Indication: BREAST CANCER METASTATIC
     Dosage: 1 DF, QD (1 TABLET, DAILY)
     Route: 048
     Dates: start: 20140604
  12. PERCOCET [Concomitant]
     Active Substance: ACETAMINOPHEN\OXYCODONE HYDROCHLORIDE
     Indication: PRODUCT USED FOR UNKNOWN INDICATION
     Dosage: 1 DF, (CUSTOM, SIG)
     Route: 048
     Dates: start: 20150123
  13. VIT E//TOCOPHERYL ACETATE [Concomitant]
     Indication: PRODUCT USED FOR UNKNOWN INDICATION
     Dosage: 1 DF, QD (1 CAPSULE, QD)
     Route: 048
     Dates: start: 20140507

REACTIONS (11)
  - Breast cancer metastatic [Not Recovered/Not Resolved]
  - Petechiae [Unknown]
  - Back pain [Recovering/Resolving]
  - Cancer pain [Unknown]
  - Arthralgia [Unknown]
  - Oedema peripheral [Unknown]
  - Lymphoedema [Recovering/Resolving]
  - Musculoskeletal pain [Unknown]
  - Blood pressure diastolic decreased [Unknown]
  - Dyspnoea exertional [Recovering/Resolving]
  - Malignant neoplasm progression [Not Recovered/Not Resolved]
